FAERS Safety Report 12411748 (Version 1)
Quarter: 2016Q2

REPORT INFORMATION
  Report Type: Spontaneous
  Country: GB (occurrence: GB)
  Receive Date: 20160527
  Receipt Date: 20160527
  Transmission Date: 20160815
  Serious: Yes (Hospitalization)
  Sender: FDA-Public Use
  Company Number: GB-TEVA-662279ISR

PATIENT
  Age: 48 Year
  Sex: Female

DRUGS (8)
  1. PREDNISOLONE. [Concomitant]
     Active Substance: PREDNISOLONE
     Indication: ASTHMA
     Dosage: 40 MG
     Route: 048
  2. SALBUTAMOL [Suspect]
     Active Substance: ALBUTEROL
     Dosage: 25 MG
     Route: 050
  3. AMINOPHYLLINE. [Concomitant]
     Active Substance: AMINOPHYLLINE
     Dosage: 2 G
     Route: 042
  4. SALBUTAMOL [Suspect]
     Active Substance: ALBUTEROL
     Indication: ASTHMA
     Dosage: AT LEAST SIX TIMES PER DAY
     Route: 055
  5. SALBUTAMOL [Suspect]
     Active Substance: ALBUTEROL
     Dosage: 5 MG
     Route: 065
  6. IPRATROPIUM BROMIDE. [Concomitant]
     Active Substance: IPRATROPIUM BROMIDE
     Indication: ASTHMA
     Dosage: 500 MICROG
     Route: 050
  7. MAGNESIUM [Concomitant]
     Active Substance: MAGNESIUM
     Dosage: 2 G
     Route: 042
  8. AMOXICILLIN. [Concomitant]
     Active Substance: AMOXICILLIN
     Route: 065

REACTIONS (2)
  - Tachypnoea [Recovered/Resolved]
  - Lactic acidosis [Recovering/Resolving]
